FAERS Safety Report 17542311 (Version 1)
Quarter: 2020Q1

REPORT INFORMATION
  Report Type: Spontaneous
  Country: PH (occurrence: PH)
  Receive Date: 20200313
  Receipt Date: 20200313
  Transmission Date: 20200409
  Serious: Yes (Other)
  Sender: FDA-Public Use
  Company Number: PH-ROCHE-2567075

PATIENT
  Sex: Male

DRUGS (10)
  1. VINCRISTINE [Suspect]
     Active Substance: VINCRISTINE
     Indication: NON-HODGKIN^S LYMPHOMA
     Dosage: PART OF RCHOP X 6 CYCLES
     Route: 065
     Dates: start: 201812, end: 201905
  2. CYCLOPHOSPHAMIDE. [Suspect]
     Active Substance: CYCLOPHOSPHAMIDE
     Indication: NON-HODGKIN^S LYMPHOMA
     Dosage: PART OF RCHOP X 6 CYCLES
     Route: 065
     Dates: start: 201812, end: 201905
  3. PREDNISOLONE. [Suspect]
     Active Substance: PREDNISOLONE
     Indication: NON-HODGKIN^S LYMPHOMA
     Dosage: PART OF RCHOP X 6 CYCLES
     Route: 065
     Dates: start: 201812, end: 201905
  4. IFOSFAMIDE. [Suspect]
     Active Substance: IFOSFAMIDE
     Indication: NON-HODGKIN^S LYMPHOMA
     Dosage: PART OF OBINUTUZUMAB + ICE X 6 CYCLES
     Route: 065
     Dates: start: 20190628, end: 20191109
  5. DOXORUBICIN [Suspect]
     Active Substance: DOXORUBICIN
     Indication: NON-HODGKIN^S LYMPHOMA
     Dosage: PART OF RCHOP X 6 CYCLES
     Route: 065
     Dates: start: 201812, end: 201905
  6. ETOPOSIDE. [Suspect]
     Active Substance: ETOPOSIDE
     Indication: NON-HODGKIN^S LYMPHOMA
     Dosage: PART OF OBINUTUZUMAB + ICE X 6 CYCLES
     Route: 065
     Dates: start: 20190628, end: 20191109
  7. RITUXIMAB. [Suspect]
     Active Substance: RITUXIMAB
     Dosage: RITUXIMAB ONLY X 2 CYCLES
     Route: 065
     Dates: start: 201905, end: 201906
  8. OBINUTUZUMAB. [Suspect]
     Active Substance: OBINUTUZUMAB
     Indication: NON-HODGKIN^S LYMPHOMA
     Dosage: PART OF OBINUTUZUMAB + ICE X 6 CYCLES
     Route: 042
     Dates: start: 20190628, end: 20191109
  9. RITUXIMAB. [Suspect]
     Active Substance: RITUXIMAB
     Indication: NON-HODGKIN^S LYMPHOMA
     Dosage: PART OF RCHOP X 6 CYCLES
     Route: 065
     Dates: start: 201812, end: 201905
  10. CARBOPLATIN. [Suspect]
     Active Substance: CARBOPLATIN
     Indication: NON-HODGKIN^S LYMPHOMA
     Dosage: PART OF OBINUTUZUMAB + ICE X 6 CYCLES
     Route: 065
     Dates: start: 20190628, end: 20191109

REACTIONS (2)
  - Nodule [Unknown]
  - Off label use [Unknown]
